FAERS Safety Report 13954366 (Version 1)
Quarter: 2017Q3

REPORT INFORMATION
  Report Type: Report from Study
  Country: US (occurrence: US)
  Receive Date: 20170911
  Receipt Date: 20170911
  Transmission Date: 20171128
  Serious: Yes (Hospitalization, Other)
  Sender: FDA-Public Use
  Company Number: US-AMGEN-USASL2017136121

PATIENT
  Age: 61 Year
  Sex: Female

DRUGS (1)
  1. KYPROLIS [Suspect]
     Active Substance: CARFILZOMIB
     Indication: PLASMA CELL MYELOMA
     Dosage: UNK
     Route: 065
     Dates: start: 201503

REACTIONS (12)
  - Oropharyngeal pain [Unknown]
  - Septic shock [Unknown]
  - Lung disorder [Unknown]
  - Pneumonia [Unknown]
  - Feeling abnormal [Unknown]
  - Off label use [Unknown]
  - Plasma cell myeloma recurrent [Unknown]
  - Cognitive disorder [Unknown]
  - Sinus disorder [Unknown]
  - Bronchitis [Unknown]
  - Asthenia [Unknown]
  - Mobility decreased [Not Recovered/Not Resolved]

NARRATIVE: CASE EVENT DATE: 201503
